FAERS Safety Report 23207498 (Version 1)
Quarter: 2023Q4

REPORT INFORMATION
  Report Type: Report from Study
  Country: CA (occurrence: CA)
  Receive Date: 20231120
  Receipt Date: 20231120
  Transmission Date: 20240109
  Serious: Yes (Hospitalization)
  Sender: FDA-Public Use
  Company Number: CA-Eisai Europe Ltd-EC-2018-035928

PATIENT
  Age: 60 Year
  Sex: Female
  Weight: 97.3 kg

DRUGS (26)
  1. LENVIMA [Suspect]
     Active Substance: LENVATINIB
     Indication: Thyroid cancer
     Route: 048
     Dates: start: 20180202, end: 20180302
  2. LENVIMA [Suspect]
     Active Substance: LENVATINIB
     Route: 048
     Dates: start: 20180309, end: 201805
  3. LENVIMA [Suspect]
     Active Substance: LENVATINIB
     Route: 048
     Dates: start: 20180507, end: 201806
  4. LENVIMA [Suspect]
     Active Substance: LENVATINIB
     Route: 048
     Dates: start: 20180611, end: 201807
  5. LENVIMA [Suspect]
     Active Substance: LENVATINIB
     Route: 048
     Dates: start: 201807, end: 201809
  6. LENVIMA [Suspect]
     Active Substance: LENVATINIB
     Route: 048
     Dates: start: 201902, end: 2019
  7. LENVIMA [Suspect]
     Active Substance: LENVATINIB
     Route: 048
     Dates: start: 20210506, end: 20220718
  8. LENVIMA [Suspect]
     Active Substance: LENVATINIB
     Route: 048
     Dates: start: 20220809, end: 2023
  9. LENVIMA [Suspect]
     Active Substance: LENVATINIB
     Dates: start: 2023, end: 2023
  10. NAPROXEN [Suspect]
     Active Substance: NAPROXEN
     Indication: Product used for unknown indication
     Dosage: UNKNOWN?{FREQUENCY TEXT} UNKNOWN
     Dates: end: 2018
  11. NAPROXEN [Suspect]
     Active Substance: NAPROXEN
     Dosage: UNKNOWN?{FREQUENCY TEXT} UNKNOWN
     Dates: end: 2018
  12. TYLENOL ARTHRITIS PAIN [Suspect]
     Active Substance: ACETAMINOPHEN
     Indication: Product used for unknown indication
     Dosage: UNKNOWN?{FREQUENCY TEXT} UNKNOWN
     Dates: end: 2018
  13. TYLENOL ARTHRITIS PAIN [Suspect]
     Active Substance: ACETAMINOPHEN
     Dosage: UNKNOWN?{FREQUENCY TEXT} UNKNOWN
     Dates: end: 2018
  14. ACEBUTOLOL [Concomitant]
     Active Substance: ACEBUTOLOL
  15. NORVASC [Concomitant]
     Active Substance: AMLODIPINE BESYLATE
  16. GABAPENTIN [Concomitant]
     Active Substance: GABAPENTIN
  17. CITALOPRAM [Concomitant]
     Active Substance: CITALOPRAM HYDROBROMIDE
  18. SYNTHROID [Concomitant]
     Active Substance: LEVOTHYROXINE SODIUM
  19. PANTOPRAZOLE [Concomitant]
     Active Substance: PANTOPRAZOLE
  20. ASPIRIN [Concomitant]
     Active Substance: ASPIRIN
  21. VITAMIN D [Concomitant]
     Active Substance: VITAMIN D NOS
  22. VITAMIN B [Concomitant]
     Active Substance: VITAMIN B
  23. FLOVENT [Concomitant]
     Active Substance: FLUTICASONE PROPIONATE
  24. VENTOLIN [Concomitant]
     Active Substance: ALBUTEROL SULFATE
  25. ATIVAN PRN [Concomitant]
  26. MELATONIN [Concomitant]
     Active Substance: MELATONIN

REACTIONS (14)
  - Intestinal perforation [Unknown]
  - Abscess [Unknown]
  - Diverticulitis [Unknown]
  - Protein urine present [Unknown]
  - Constipation [Recovered/Resolved]
  - Diarrhoea [Unknown]
  - Oral pain [Unknown]
  - Pneumonia [Unknown]
  - Anxiety [Unknown]
  - Blood pressure increased [Not Recovered/Not Resolved]
  - Muscle spasms [Not Recovered/Not Resolved]
  - Arthralgia [Not Recovered/Not Resolved]
  - Wound [Unknown]
  - Gastroenteritis viral [Unknown]

NARRATIVE: CASE EVENT DATE: 20180101
